FAERS Safety Report 10265443 (Version 1)
Quarter: 2014Q2

REPORT INFORMATION
  Report Type: Spontaneous
  Country: DE (occurrence: DE)
  Receive Date: 20140627
  Receipt Date: 20140627
  Transmission Date: 20141212
  Serious: Yes (Death)
  Sender: FDA-Public Use
  Company Number: DE-TEVA-489770GER

PATIENT
  Age: 23 Year
  Sex: Male

DRUGS (5)
  1. VALPROIC ACID [Suspect]
     Indication: PARTIAL SEIZURES
     Route: 065
  2. CARBAMAZEPINE [Suspect]
     Route: 065
  3. FUROSEMIDE [Suspect]
     Route: 065
  4. PHENOBARBITAL [Suspect]
     Route: 065
  5. VITAMIN K [Suspect]
     Route: 065

REACTIONS (1)
  - Hepatic failure [Fatal]
